FAERS Safety Report 15686005 (Version 2)
Quarter: 2019Q1

REPORT INFORMATION
  Report Type: Spontaneous
  Country: US (occurrence: US)
  Receive Date: 20181204
  Receipt Date: 20190212
  Transmission Date: 20190417
  Serious: Yes (Other)
  Sender: FDA-Public Use
  Company Number: US-SA-2018SA326314

PATIENT
  Age: 40 Year
  Sex: Female
  Weight: 85.26 kg

DRUGS (7)
  1. PERTUZUMAB. [Concomitant]
     Active Substance: PERTUZUMAB
  2. TAXOTERE [Suspect]
     Active Substance: DOCETAXEL
     Indication: BREAST CANCER FEMALE
     Dosage: UNK UNK, Q3W
     Route: 042
     Dates: start: 20140328, end: 20140328
  3. ZOLADEX GYN [Concomitant]
  4. TAXOTERE [Suspect]
     Active Substance: DOCETAXEL
     Dosage: UNK UNK, Q3W
     Route: 042
     Dates: start: 20140710, end: 20140710
  5. ARIMIDEX [Concomitant]
     Active Substance: ANASTROZOLE
  6. HERCEPTIN [Concomitant]
     Active Substance: TRASTUZUMAB
  7. CARBOPLATIN. [Concomitant]
     Active Substance: CARBOPLATIN

REACTIONS (1)
  - Alopecia [Recovering/Resolving]

NARRATIVE: CASE EVENT DATE: 20140501
